FAERS Safety Report 25230253 (Version 1)
Quarter: 2025Q2

REPORT INFORMATION
  Report Type: Spontaneous
  Country: US (occurrence: None)
  Receive Date: 20250422
  Receipt Date: 20250422
  Transmission Date: 20250716
  Serious: Yes (Hospitalization)
  Sender: FDA-CTU
  Company Number: None

PATIENT
  Age: 76 Year
  Sex: Male
  Weight: 86.31 kg

DRUGS (7)
  1. GLOFITAMAB [Suspect]
     Active Substance: GLOFITAMAB
     Indication: Mantle cell lymphoma
     Route: 042
     Dates: start: 20250414, end: 20250414
  2. ACYCLOVIR [Concomitant]
     Active Substance: ACYCLOVIR
  3. SEPTRA DS [Concomitant]
     Active Substance: SULFAMETHOXAZOLE\TRIMETHOPRIM
  4. ALLOPURINOL [Concomitant]
     Active Substance: ALLOPURINOL
  5. ACETAMINOPHEN [Concomitant]
     Active Substance: ACETAMINOPHEN
  6. DIPHENHYDRAMINE [Concomitant]
     Active Substance: DIPHENHYDRAMINE
  7. Dexamethasone (20 mg) [Concomitant]
     Dates: start: 20250414, end: 20250414

REACTIONS (7)
  - Infusion related reaction [None]
  - Cytokine release syndrome [None]
  - Blood lactic acid increased [None]
  - Infection [None]
  - Vomiting [None]
  - Immune effector cell-associated neurotoxicity syndrome [None]
  - Hypertension [None]

NARRATIVE: CASE EVENT DATE: 20250414
